FAERS Safety Report 21694873 (Version 4)
Quarter: 2023Q1

REPORT INFORMATION
  Report Type: Report from Study
  Country: US (occurrence: US)
  Receive Date: 20221207
  Receipt Date: 20230309
  Transmission Date: 20230417
  Serious: Yes (Other)
  Sender: FDA-Public Use
  Company Number: US-ABBVIE-4225620

PATIENT
  Sex: Male

DRUGS (4)
  1. VENCLEXTA [Suspect]
     Active Substance: VENETOCLAX
     Indication: Acute erythroid leukaemia
     Dosage: FORM STRENGTH: 50 MILLIGRAM
     Route: 048
  2. VENCLEXTA [Suspect]
     Active Substance: VENETOCLAX
     Indication: Acute erythroid leukaemia
     Dosage: FORM STRENGTH: 100 MILLIGRAM
     Route: 048
  3. VENCLEXTA [Suspect]
     Active Substance: VENETOCLAX
     Indication: Acute erythroid leukaemia
     Route: 048
  4. LEVOFLOXACIN [Concomitant]
     Active Substance: LEVOFLOXACIN
     Indication: Product used for unknown indication
     Route: 065

REACTIONS (7)
  - Bone cancer [Unknown]
  - Off label use [Unknown]
  - Platelet count decreased [Unknown]
  - White blood cell count increased [Unknown]
  - White blood cell count decreased [Unknown]
  - Tinnitus [Unknown]
  - Product dispensing error [Unknown]
